FAERS Safety Report 8604324-3 (Version None)
Quarter: 2012Q3

REPORT INFORMATION
  Report Type: 
  Country: None (occurrence: None)
  Receive Date: 20120807
  Receipt Date: 20120801
  Transmission Date: 20120928
  Serious: Yes (Other)
  Sender: FDA-Public Use
  Company Number: GER/UKI/12/0024631

PATIENT
  Age: 16 Year
  Sex: Male

DRUGS (4)
  1. OLANZAPINE [Suspect]
     Indication: PSYCHOTIC DISORDER
     Dosage: 5 MG, 1 IN 1 D, ORAL
     Route: 048
     Dates: start: 20120524
  2. ZYPREXA [Suspect]
     Indication: PSYCHOTIC DISORDER
     Dosage: 15 MG
     Dates: start: 20120522
  3. ZYPREXA [Suspect]
     Indication: MENTAL DISORDER
     Dosage: 10 MG, 2 IN 1 D, INTRAMUSCULAR ; 2.5 MG, INTRAMUSCULAR ; 5 MG, INTRAMUSCULAR
     Route: 030
     Dates: start: 20120521, end: 20120523
  4. ZUCLOPENTHIXOL (ZUCLOPENTHIXOL) [Concomitant]

REACTIONS (7)
  - CHEST PAIN [None]
  - PERICARDITIS [None]
  - TROPONIN INCREASED [None]
  - MYOCARDITIS [None]
  - PSYCHOTIC DISORDER [None]
  - BLOOD THROMBIN INCREASED [None]
  - BLOOD CREATINE PHOSPHOKINASE INCREASED [None]
